FAERS Safety Report 13755901 (Version 1)
Quarter: 2017Q3

REPORT INFORMATION
  Report Type: Spontaneous
  Country: AU (occurrence: AU)
  Receive Date: 20170714
  Receipt Date: 20170714
  Transmission Date: 20171127
  Serious: Yes (Other)
  Sender: FDA-Public Use
  Company Number: PHHY2017AU099588

PATIENT
  Age: 56 Year
  Sex: Female

DRUGS (3)
  1. VITAMIN D [Concomitant]
     Active Substance: CHOLECALCIFEROL
     Indication: PRODUCT USED FOR UNKNOWN INDICATION
     Dosage: 10000 IU, QD
     Route: 065
  2. GILENYA [Suspect]
     Active Substance: FINGOLIMOD HYDROCHLORIDE
     Indication: RELAPSING-REMITTING MULTIPLE SCLEROSIS
     Dosage: UNK
     Route: 065
     Dates: start: 201307, end: 201703
  3. TEMAZEPAM. [Concomitant]
     Active Substance: TEMAZEPAM
     Indication: PRODUCT USED FOR UNKNOWN INDICATION
     Dosage: UNK, PRN (3 TIMES A WEEK)
     Route: 065

REACTIONS (14)
  - Pain [Unknown]
  - Rash pruritic [Unknown]
  - Pneumonia cryptococcal [Recovering/Resolving]
  - Herpes zoster [Recovering/Resolving]
  - Chest discomfort [Not Recovered/Not Resolved]
  - Rheumatoid arthritis [Unknown]
  - Pulmonary mass [Unknown]
  - Arthralgia [Unknown]
  - Lymphopenia [Recovering/Resolving]
  - Anxiety [Unknown]
  - Hyperreflexia [Unknown]
  - Dyslipidaemia [Unknown]
  - Agitation [Unknown]
  - Oral herpes [Unknown]

NARRATIVE: CASE EVENT DATE: 201703
